FAERS Safety Report 8388438-1 (Version None)
Quarter: 2012Q2

REPORT INFORMATION
  Report Type: 
  Country: None (occurrence: None)
  Receive Date: 20120525
  Receipt Date: 20120517
  Transmission Date: 20120825
  Serious: Yes (Hospitalization, Other)
  Sender: FDA-Public Use
  Company Number: US-ASTRAZENECA-2012SE23830

PATIENT
  Age: 46 Year
  Sex: Female
  Weight: 83.9 kg

DRUGS (4)
  1. SEROQUEL [Suspect]
     Indication: BIPOLAR DISORDER
     Route: 048
  2. WELLBUTRIN [Concomitant]
     Indication: DEPRESSION
  3. SEROQUEL [Suspect]
     Indication: DEPRESSION
     Route: 048
  4. AMBIEN [Concomitant]
     Indication: SLEEP DISORDER

REACTIONS (15)
  - ARTHROPATHY [None]
  - HAEMORRHAGE [None]
  - CRYING [None]
  - BURNING SENSATION [None]
  - INTENTIONAL DRUG MISUSE [None]
  - FATIGUE [None]
  - IMPAIRED WORK ABILITY [None]
  - PAIN IN EXTREMITY [None]
  - INSOMNIA RELATED TO ANOTHER MENTAL CONDITION [None]
  - TACHYPHRENIA [None]
  - INSOMNIA [None]
  - SENSITISATION [None]
  - THROMBOSIS [None]
  - POST PROCEDURAL COMPLICATION [None]
  - SOMNOLENCE [None]
